FAERS Safety Report 4345290-9 (Version None)
Quarter: 2004Q2

REPORT INFORMATION
  Report Type: 
  Country: None (occurrence: None)
  Receive Date: 20040420
  Receipt Date: 20040407
  Transmission Date: 20050107
  Serious: No
  Sender: FDA-Public Use
  Company Number: 04H-163-0254369-00

PATIENT
  Age: 4 Month
  Sex: Male

DRUGS (3)
  1. NITROPRESS [Suspect]
     Indication: BLOOD PRESSURE ABNORMAL
     Dosage: 1-4 MCG/KG, INTERMITTENT, INTRAVENOUS
     Route: 042
     Dates: start: 20040301, end: 20040301
  2. FENTANYL [Concomitant]
  3. SEVOFLURANE [Concomitant]

REACTIONS (1)
  - BLOOD PRESSURE INCREASED [None]
